FAERS Safety Report 4702040-1 (Version None)
Quarter: 2005Q2

REPORT INFORMATION
  Report Type: 
  Country: None (occurrence: None)
  Receive Date: 20050627
  Receipt Date: 20050614
  Transmission Date: 20051028
  Serious: Yes (Other)
  Sender: FDA-Public Use
  Company Number: 2005063311

PATIENT
  Sex: Female

DRUGS (18)
  1. NEURONTIN [Suspect]
     Indication: RESTLESS LEGS SYNDROME
     Dosage: 900 MG (900 MG, 1 IN 1 D), ORAL
     Route: 048
  2. GABAPENTIN [Suspect]
     Indication: RESTLESS LEGS SYNDROME
     Dosage: 900 MG (900 MG, 1 IN 1 D), ORAL
     Route: 048
     Dates: start: 20050401, end: 20050401
  3. GLUCOTROL [Concomitant]
  4. GLUCOPHAGE [Concomitant]
  5. SYNTHROID [Concomitant]
  6. PROVERA [Concomitant]
  7. ESTRACE [Concomitant]
  8. FOLIC ACID [Concomitant]
  9. METHOTREXARE (METHOTREXATE) [Concomitant]
  10. MULTIVITAMIN [Concomitant]
  11. XALATAN [Concomitant]
  12. ALPRAZOLAM [Concomitant]
  13. LOMOTIL [Concomitant]
  14. DILAUDID (HYDROMORHONE HYDROCHLORIDE) [Concomitant]
  15. ACETAMINOPHEN W/ CODEINE [Concomitant]
  16. PROPOXYPHENE HCL AND ACETAMINOPHEN (DEXTROPROPOXYPHENE HYDROCHLORIDE, [Concomitant]
  17. ENTEX PSE (GUAIFENESIN, PSEUDOEPHEDRINE HYDROCHLORIDE) [Concomitant]
  18. VICODIN ES [Concomitant]

REACTIONS (7)
  - ASTHENIA [None]
  - DRUG INEFFECTIVE [None]
  - FATIGUE [None]
  - PHARMACEUTICAL PRODUCT COMPLAINT [None]
  - SLEEP APNOEA SYNDROME [None]
  - SOMNOLENCE [None]
  - WEIGHT DECREASED [None]
